FAERS Safety Report 20851327 (Version 6)
Quarter: 2024Q1

REPORT INFORMATION
  Report Type: Spontaneous
  Country: JP (occurrence: JP)
  Receive Date: 20220519
  Receipt Date: 20240226
  Transmission Date: 20240410
  Serious: Yes (Death, Hospitalization, Other)
  Sender: FDA-Public Use
  Company Number: JP-SA-2022SA178782

PATIENT
  Age: 48 Year
  Sex: Male
  Weight: 60 kg

DRUGS (21)
  1. ALPROLIX [Suspect]
     Active Substance: EFTRENONACOG ALFA
     Indication: Factor IX deficiency
     Dosage: 6000 IU, QW
     Route: 042
     Dates: start: 202012, end: 20240206
  2. ALPROLIX [Suspect]
     Active Substance: EFTRENONACOG ALFA
     Indication: Factor IX deficiency
     Dosage: 6000 IU, QW
     Route: 042
     Dates: start: 202012, end: 20240206
  3. ALPROLIX [Suspect]
     Active Substance: EFTRENONACOG ALFA
     Dosage: 6000 IU/DAY
     Route: 042
  4. ALPROLIX [Suspect]
     Active Substance: EFTRENONACOG ALFA
     Dosage: 6000 IU/DAY
     Route: 042
  5. ALPROLIX [Suspect]
     Active Substance: EFTRENONACOG ALFA
     Indication: Factor IX deficiency
     Dosage: 4000 IU, QW
     Route: 042
     Dates: start: 202101, end: 20220509
  6. ALPROLIX [Suspect]
     Active Substance: EFTRENONACOG ALFA
     Indication: Factor IX deficiency
     Dosage: 4000 IU, QW
     Route: 042
     Dates: start: 202101, end: 20220509
  7. ALPROLIX [Suspect]
     Active Substance: EFTRENONACOG ALFA
     Dosage: 6000 IU, DAILY ADMINISTRATION
     Route: 042
     Dates: start: 20220513, end: 202205
  8. ALPROLIX [Suspect]
     Active Substance: EFTRENONACOG ALFA
     Dosage: 6000 IU, DAILY ADMINISTRATION
     Route: 042
     Dates: start: 20220513, end: 202205
  9. ALPROLIX [Suspect]
     Active Substance: EFTRENONACOG ALFA
     Dosage: 4000 IU, QW
     Route: 042
     Dates: start: 202205
  10. ALPROLIX [Suspect]
     Active Substance: EFTRENONACOG ALFA
     Dosage: 4000 IU, QW
     Route: 042
     Dates: start: 202205
  11. ALPROLIX [Suspect]
     Active Substance: EFTRENONACOG ALFA
     Dosage: 4000 IU, DAILY ADMINISTRATION
     Route: 042
     Dates: start: 20240204
  12. ALPROLIX [Suspect]
     Active Substance: EFTRENONACOG ALFA
     Dosage: 4000 IU, DAILY ADMINISTRATION
     Route: 042
     Dates: start: 20240204
  13. CALCIUM CARBONATE\CHOLECALCIFEROL\MAGNESIUM CARBONATE [Concomitant]
     Active Substance: CALCIUM CARBONATE\CHOLECALCIFEROL\MAGNESIUM CARBONATE
     Indication: Product used for unknown indication
     Dosage: 1 DF, BID
     Route: 048
     Dates: end: 20240207
  14. URAPIDIL [Concomitant]
     Active Substance: URAPIDIL
     Indication: HIV infection
     Dosage: 15 MG, BID
     Route: 048
     Dates: end: 20240207
  15. URAPIDIL [Concomitant]
     Active Substance: URAPIDIL
     Dosage: 1 UNK, QD
     Route: 048
  16. PHENOBARBITAL [Concomitant]
     Active Substance: PHENOBARBITAL
     Indication: Product used for unknown indication
     Dosage: 45 MG, BID
     Route: 048
     Dates: end: 20240207
  17. VALPROATE SODIUM [Concomitant]
     Active Substance: VALPROATE SODIUM
     Indication: Product used for unknown indication
     Dosage: 3 DF, BID
     Route: 048
     Dates: end: 20240207
  18. LACTULOSE [Concomitant]
     Active Substance: LACTULOSE
     Indication: Product used for unknown indication
     Dosage: 15 ML, BID
     Route: 048
     Dates: end: 20240207
  19. AMMONIUM GLYCYRRHIZATE\GLYCINE\RACEMETHIONINE [Concomitant]
     Active Substance: AMMONIUM GLYCYRRHIZATE\GLYCINE\RACEMETHIONINE
     Indication: Hepatitis
     Dosage: 1 UNK, QD
     Route: 048
  20. ALOSENN [SENNOSIDE A+B] [Concomitant]
     Indication: Gastric ulcer
     Dosage: 1 UNK, BID
     Route: 048
  21. VALPROATE SODIUM [Concomitant]
     Active Substance: VALPROATE SODIUM
     Indication: Epilepsy
     Dosage: 600 MG, QD
     Route: 048

REACTIONS (5)
  - Putamen haemorrhage [Fatal]
  - Dysstasia [Fatal]
  - Intraventricular haemorrhage [Recovered/Resolved]
  - Haematuria [Unknown]
  - Haematuria [Recovered/Resolved]

NARRATIVE: CASE EVENT DATE: 20220510
